FAERS Safety Report 4715278-4 (Version None)
Quarter: 2005Q3

REPORT INFORMATION
  Report Type: 
  Country: None (occurrence: None)
  Receive Date: 20050715
  Receipt Date: 20050614
  Transmission Date: 20060218
  Serious: Yes (Other)
  Sender: FDA-Public Use
  Company Number: US-KINGPHARMUSA00001-K200500813

PATIENT
  Sex: Female

DRUGS (9)
  1. ALTACE [Suspect]
     Indication: HYPOTENSION
     Dosage: 2.5 MG, QD
     Route: 048
     Dates: start: 20030515, end: 20040325
  2. LANSOPRAZOLE [Concomitant]
     Indication: DYSPEPSIA
     Dosage: 15 MG, UNK
  3. ATENOLOL [Concomitant]
     Indication: HYPOTENSION
     Dosage: 50 MG, UNK
  4. ASPIRIN [Concomitant]
     Indication: MYOCARDIAL ISCHAEMIA
     Dosage: 75 MG, UNK
  5. MONOMAX [Concomitant]
     Dosage: 60 MG, UNK
  6. ZOLPIDEM [Concomitant]
     Indication: INSOMNIA
     Dosage: 10 MG, UNK
  7. SIMVASTATIN [Concomitant]
     Dosage: 40 MG, UNK
  8. NICORANDIL [Concomitant]
     Dosage: 10 MG, UNK
  9. ACETAMINOPHEN W/ CODEINE [Concomitant]

REACTIONS (16)
  - ANOREXIA [None]
  - ANXIETY [None]
  - ASTHENIA [None]
  - BRONCHITIS [None]
  - CONJUNCTIVITIS [None]
  - DIZZINESS [None]
  - DYSPNOEA [None]
  - HAEMOPTYSIS [None]
  - HEADACHE [None]
  - LACRIMATION INCREASED [None]
  - MALAISE [None]
  - NASAL CONGESTION [None]
  - PHARYNGOLARYNGEAL PAIN [None]
  - PRODUCTIVE COUGH [None]
  - PRURITUS [None]
  - RESPIRATORY DISORDER [None]
